FAERS Safety Report 19916306 (Version 2)
Quarter: 2022Q4

REPORT INFORMATION
  Report Type: Report from Study
  Country: JP (occurrence: JP)
  Receive Date: 20211004
  Receipt Date: 20221115
  Transmission Date: 20230113
  Serious: Yes (Death)
  Sender: FDA-Public Use
  Company Number: JP-PFIZER INC-202101287551

PATIENT

DRUGS (4)
  1. OXALIPLATIN [Suspect]
     Active Substance: OXALIPLATIN
     Indication: HER2 positive gastric cancer
     Dosage: 100 MG/M2 (ON DAY 1)
     Route: 042
  2. TRASTUZUMAB [Suspect]
     Active Substance: TRASTUZUMAB
     Indication: HER2 positive gastric cancer
     Dosage: 8 MG/KG, CYCLIC 1, ON DAY 1
     Route: 042
  3. TRASTUZUMAB [Suspect]
     Active Substance: TRASTUZUMAB
     Dosage: 6 MG/KG (CYCLE 2 ONWARD, EVERY 3 WEEK)
     Route: 042
  4. TS-1 [Suspect]
     Active Substance: GIMERACIL\OTERACIL\TEGAFUR
     Indication: HER2 positive gastric cancer
     Dosage: TWICE DAILY AT A DOSE BASED ON BODY SURFACE AREA ON DAYS 1-14 OF A 21-DAY CYCLE
     Route: 048

REACTIONS (3)
  - Interstitial lung disease [Fatal]
  - Pneumonitis [Fatal]
  - Respiratory failure [Fatal]
